FAERS Safety Report 13057178 (Version 1)
Quarter: 2016Q4

REPORT INFORMATION
  Report Type: Spontaneous
  Country: US (occurrence: US)
  Receive Date: 20161222
  Receipt Date: 20161222
  Transmission Date: 20170207
  Serious: No
  Sender: FDA-Public Use
  Company Number: None

PATIENT
  Age: 72 Year
  Sex: Female

DRUGS (6)
  1. DILTIAZEM. [Concomitant]
     Active Substance: DILTIAZEM
  2. LETAIRIS [Suspect]
     Active Substance: AMBRISENTAN
     Indication: PULMONARY ARTERIAL HYPERTENSION
     Dosage: 5MG DAILY FOR 30 DAYS ORAL
     Route: 048
  3. QVAR [Concomitant]
     Active Substance: BECLOMETHASONE DIPROPIONATE
  4. LORAZEPAM. [Concomitant]
     Active Substance: LORAZEPAM
  5. SILDENAFIL. [Concomitant]
     Active Substance: SILDENAFIL
  6. ALBUTEROL. [Concomitant]
     Active Substance: ALBUTEROL

REACTIONS (5)
  - Wheezing [None]
  - Oropharyngeal pain [None]
  - Dyspnoea exertional [None]
  - Swelling [None]
  - Cough [None]

NARRATIVE: CASE EVENT DATE: 20161213
